FAERS Safety Report 4996574-2 (Version None)
Quarter: 2006Q2

REPORT INFORMATION
  Report Type: 
  Country: None (occurrence: None)
  Receive Date: 20060505
  Receipt Date: 20060424
  Transmission Date: 20061013
  Serious: Yes (Death)
  Sender: FDA-Public Use
  Company Number: US-2005-028046

PATIENT
  Age: 62 Year
  Sex: Female

DRUGS (1)
  1. BETASERON [Suspect]
     Indication: MULTIPLE SCLEROSIS
     Dosage: SUBCUTANEOUS
     Route: 058
     Dates: start: 20030915, end: 20051226

REACTIONS (4)
  - BRAIN NEOPLASM [None]
  - CONVULSION [None]
  - HALLUCINATION [None]
  - RESPIRATORY ARREST [None]
